FAERS Safety Report 21037667 (Version 1)
Quarter: 2022Q3

REPORT INFORMATION
  Report Type: Spontaneous
  Country: QA (occurrence: None)
  Receive Date: 20220704
  Receipt Date: 20220704
  Transmission Date: 20221027
  Serious: Yes (Other)
  Sender: FDA-Public Use
  Company Number: QA-MDD US Operations-MDD202206-001813

PATIENT
  Age: 34 Year
  Sex: Female

DRUGS (1)
  1. RIMABOTULINUMTOXINB [Suspect]
     Active Substance: RIMABOTULINUMTOXINB
     Indication: Overweight
     Dosage: NOT PROVIDED

REACTIONS (2)
  - Bezoar [Recovered/Resolved]
  - Product use in unapproved indication [Unknown]
